FAERS Safety Report 23229525 (Version 3)
Quarter: 2023Q4

REPORT INFORMATION
  Report Type: Report from Study
  Country: IT (occurrence: IT)
  Receive Date: 20231127
  Receipt Date: 20231225
  Transmission Date: 20240110
  Serious: Yes (Hospitalization)
  Sender: FDA-Public Use
  Company Number: IT-EMA-DD-20200513-kakwani_d-122220

PATIENT
  Age: 89 Year
  Sex: Female

DRUGS (6)
  1. APIXABAN [Interacting]
     Active Substance: APIXABAN
     Indication: Atrial fibrillation
     Dosage: 2.5 MILLIGRAM, TWO TIMES A DAY(2.5 MG/DAY X 2)
     Route: 048
  2. APIXABAN [Interacting]
     Active Substance: APIXABAN
     Dosage: 2.5 MILLIGRAM, ONCE A DAY
     Route: 048
  3. HYDROXYCHLOROQUINE [Interacting]
     Active Substance: HYDROXYCHLOROQUINE
     Indication: COVID-19 pneumonia
     Dosage: UNK
     Route: 065
     Dates: start: 2020
  4. HYDROXYCHLOROQUINE [Interacting]
     Active Substance: HYDROXYCHLOROQUINE
     Indication: Coronavirus infection
  5. LOPINAVIR\RITONAVIR [Interacting]
     Active Substance: LOPINAVIR\RITONAVIR
     Indication: COVID-19 pneumonia
     Dosage: UNK
     Route: 048
     Dates: start: 2020
  6. LOPINAVIR\RITONAVIR [Interacting]
     Active Substance: LOPINAVIR\RITONAVIR
     Indication: Coronavirus infection

REACTIONS (4)
  - Anticoagulation drug level increased [Unknown]
  - Drug level increased [Unknown]
  - Drug interaction [Unknown]
  - Off label use [Unknown]

NARRATIVE: CASE EVENT DATE: 20200101
